FAERS Safety Report 10468929 (Version 1)
Quarter: 2014Q3

REPORT INFORMATION
  Report Type: Spontaneous
  Country: US (occurrence: US)
  Receive Date: 20140923
  Receipt Date: 20140923
  Transmission Date: 20150326
  Serious: No
  Sender: FDA-Public Use
  Company Number: US-009507513-1409USA005667

PATIENT
  Sex: Female
  Weight: 54.42 kg

DRUGS (1)
  1. IMPLANON [Suspect]
     Active Substance: ETONOGESTREL
     Indication: CONTRACEPTION
     Dosage: 1 DF, 3 X PER YEAR, SUBDERMAL UPPER LEFT ARM
     Route: 059
     Dates: start: 20110716

REACTIONS (7)
  - Weight decreased [Unknown]
  - Mood swings [Unknown]
  - Hunger [Unknown]
  - Decreased appetite [Unknown]
  - Abdominal distension [Unknown]
  - Menstruation irregular [Unknown]
  - Depression [Unknown]

NARRATIVE: CASE EVENT DATE: 2014
